FAERS Safety Report 25010460 (Version 2)
Quarter: 2025Q2

REPORT INFORMATION
  Report Type: Report from Study
  Country: CA (occurrence: CA)
  Receive Date: 20250225
  Receipt Date: 20250428
  Transmission Date: 20250716
  Serious: Yes (Other)
  Sender: TAKEDA
  Company Number: CA-TAKEDA-2025TUS015411

PATIENT
  Sex: Female

DRUGS (5)
  1. VEDOLIZUMAB [Suspect]
     Active Substance: VEDOLIZUMAB
     Indication: Crohn^s disease
  2. VEDOLIZUMAB [Suspect]
     Active Substance: VEDOLIZUMAB
     Dosage: 300 MILLIGRAM, Q4WEEKS
     Dates: start: 20241217
  3. VEDOLIZUMAB [Suspect]
     Active Substance: VEDOLIZUMAB
     Dosage: 300 MILLIGRAM, Q4WEEKS
  4. VEDOLIZUMAB [Suspect]
     Active Substance: VEDOLIZUMAB
     Indication: Crohn^s disease
     Dosage: 108 MILLIGRAM, Q2WEEKS
     Dates: start: 20241007
  5. PREDNISONE [Concomitant]
     Active Substance: PREDNISONE

REACTIONS (3)
  - Pneumonia [Unknown]
  - Sinusitis [Unknown]
  - Headache [Recovering/Resolving]
